FAERS Safety Report 18190741 (Version 7)
Quarter: 2020Q4

REPORT INFORMATION
  Report Type: Report from Study
  Country: US (occurrence: US)
  Receive Date: 20200825
  Receipt Date: 20201215
  Transmission Date: 20210113
  Serious: Yes (Other)
  Sender: FDA-Public Use
  Company Number: US-CLOVIS ONCOLOGY-CLO-2020-001546

PATIENT
  Sex: Female

DRUGS (6)
  1. RUBRACA [Suspect]
     Active Substance: RUCAPARIB CAMSYLATE
     Dosage: 500 MG, BID
     Route: 048
     Dates: start: 20200925
  2. RUBRACA [Suspect]
     Active Substance: RUCAPARIB CAMSYLATE
     Indication: OVARIAN CANCER
     Dosage: 600 MG, BID
     Route: 048
     Dates: start: 20200808
  3. RUBRACA [Suspect]
     Active Substance: RUCAPARIB CAMSYLATE
     Dosage: 400 MG, BID
     Route: 048
     Dates: start: 20200805, end: 2020
  4. RUBRACA [Suspect]
     Active Substance: RUCAPARIB CAMSYLATE
     Dosage: 600 MG, BID
     Route: 048
     Dates: start: 20200808, end: 202008
  5. RUBRACA [Suspect]
     Active Substance: RUCAPARIB CAMSYLATE
     Dosage: 400 MG, BID
     Route: 048
     Dates: start: 20200805, end: 2020
  6. RUBRACA [Suspect]
     Active Substance: RUCAPARIB CAMSYLATE
     Dosage: 500 MG, BID
     Route: 048
     Dates: start: 20200808, end: 20200828

REACTIONS (14)
  - Blood creatinine increased [Unknown]
  - Stress [Unknown]
  - Liver function test abnormal [Unknown]
  - Renal function test abnormal [Unknown]
  - Neuropathy peripheral [Unknown]
  - Anxiety [Unknown]
  - Dyspepsia [Unknown]
  - Blood test abnormal [Unknown]
  - Glomerular filtration rate decreased [Unknown]
  - Sleep disorder [Unknown]
  - Joint stiffness [Unknown]
  - Eructation [Unknown]
  - Platelet count decreased [Not Recovered/Not Resolved]
  - Blood urea increased [Unknown]

NARRATIVE: CASE EVENT DATE: 2020
